FAERS Safety Report 24579029 (Version 1)
Quarter: 2024Q4

REPORT INFORMATION
  Report Type: Report from Study
  Country: US (occurrence: US)
  Receive Date: 20241105
  Receipt Date: 20241105
  Transmission Date: 20250115
  Serious: Yes (Other)
  Sender: ABBVIE
  Company Number: US-ABBVIE-5987142

PATIENT
  Sex: Male

DRUGS (1)
  1. SKYRIZI [Suspect]
     Active Substance: RISANKIZUMAB-RZAA
     Indication: Psoriasis
     Dosage: DOSAGE: 150 MG/ML DOSAGE: 150MG/ML?FORM STRENGTH: 150 MG
     Route: 058

REACTIONS (3)
  - Cataract [Unknown]
  - Injection site haemorrhage [Unknown]
  - Wrong technique in product usage process [Not Recovered/Not Resolved]
